FAERS Safety Report 20693972 (Version 1)
Quarter: 2022Q2

REPORT INFORMATION
  Report Type: Spontaneous
  Country: CN (occurrence: CN)
  Receive Date: 20220411
  Receipt Date: 20220411
  Transmission Date: 20220720
  Serious: Yes (Other)
  Sender: FDA-Public Use
  Company Number: None

PATIENT
  Age: 69 Year
  Sex: Female
  Weight: 68 kg

DRUGS (2)
  1. NOVORAPID [Suspect]
     Active Substance: INSULIN ASPART
     Indication: Type 2 diabetes mellitus
     Dosage: BASAL RATE 0.8U/H, 7U BEFORE MEALS
     Route: 058
     Dates: start: 20220321
  2. NOVORAPID [Suspect]
     Active Substance: INSULIN ASPART
     Dosage: BASAL RATE 0.8U/H, 5U BEFORE MEALS
     Route: 058
     Dates: start: 20220322

REACTIONS (2)
  - Palpitations [Recovered/Resolved]
  - Hypoglycaemia [Recovered/Resolved]

NARRATIVE: CASE EVENT DATE: 20220322
